FAERS Safety Report 16020738 (Version 2)
Quarter: 2019Q1

REPORT INFORMATION
  Report Type: Spontaneous
  Country: DE (occurrence: DE)
  Receive Date: 20190301
  Receipt Date: 20190310
  Transmission Date: 20190418
  Serious: Yes (Hospitalization, Other)
  Sender: FDA-Public Use
  Company Number: DE-ACCORD-108938

PATIENT
  Age: 72 Year
  Sex: Male

DRUGS (3)
  1. DOMINAL (ACETYLSALICYLIC ACID) [Suspect]
     Active Substance: ASPIRIN
     Indication: PRODUCT USED FOR UNKNOWN INDICATION
     Dosage: 80 MG, UNK
     Route: 048
     Dates: start: 20171121, end: 20171121
  2. AMITRIPTYLINE [Suspect]
     Active Substance: AMITRIPTYLINE
     Indication: SLEEP DISORDER
     Dosage: TAKING FOR 4 MONTHS?50 MG, QD?LAST ADMINISTERED ON 20-NOV-2017
     Route: 048
     Dates: start: 20171121
  3. DIPIPERON [Suspect]
     Active Substance: PIPAMPERONE
     Indication: PRODUCT USED FOR UNKNOWN INDICATION
     Dosage: 60 MG, UNK?ALSO RECEIVED 40 MG ,20 MG ON 21-NOV-2017 FOR  1 DAY.
     Route: 048
     Dates: start: 20171121, end: 20171121

REACTIONS (2)
  - Fall [Unknown]
  - Facial bones fracture [Recovered/Resolved]

NARRATIVE: CASE EVENT DATE: 20171122
